FAERS Safety Report 7608147-3 (Version None)
Quarter: 2011Q3

REPORT INFORMATION
  Report Type: 
  Country: None (occurrence: None)
  Receive Date: 20110714
  Receipt Date: 20110704
  Transmission Date: 20111222
  Serious: Yes (Death)
  Sender: FDA-Public Use
  Company Number: US-RB-026755-11

PATIENT
  Age: 48 Year
  Sex: Female

DRUGS (3)
  1. CHLORPHENIRAMINE MALEATE [Suspect]
  2. GUAIFENESIN [Suspect]
  3. DIPHENHYDRAMINE HCL [Suspect]

REACTIONS (2)
  - COMPLETED SUICIDE [None]
  - TOXICITY TO VARIOUS AGENTS [None]
